FAERS Safety Report 11894495 (Version 3)
Quarter: 2016Q2

REPORT INFORMATION
  Report Type: Spontaneous
  Country: US (occurrence: US)
  Receive Date: 20160107
  Receipt Date: 20160601
  Transmission Date: 20160815
  Serious: Yes (Hospitalization, Other)
  Sender: FDA-Public Use
  Company Number: US-BAYER-2015-495347

PATIENT
  Age: 22 Year
  Sex: Female

DRUGS (2)
  1. MIRENA [Suspect]
     Active Substance: LEVONORGESTREL
     Indication: MENORRHAGIA
  2. MIRENA [Suspect]
     Active Substance: LEVONORGESTREL
     Indication: CONTRACEPTION
     Dosage: 20 MCG/24HR, CONT
     Route: 015
     Dates: start: 20120803, end: 20131112

REACTIONS (13)
  - Device issue [None]
  - Pregnancy with contraceptive device [None]
  - Abdominal pain lower [None]
  - Loss of libido [None]
  - Anxiety [None]
  - Genital haemorrhage [None]
  - Device dislocation [None]
  - Abortion spontaneous [None]
  - Drug ineffective [None]
  - Mobility decreased [None]
  - Depression [None]
  - Dyspareunia [None]
  - Asthenia [None]

NARRATIVE: CASE EVENT DATE: 201301
